FAERS Safety Report 23036746 (Version 3)
Quarter: 2023Q4

REPORT INFORMATION
  Report Type: Spontaneous
  Country: GB (occurrence: GB)
  Receive Date: 20231006
  Receipt Date: 20231023
  Transmission Date: 20240110
  Serious: Yes (Other)
  Sender: FDA-Public Use
  Company Number: GB-Merz Pharmaceuticals GmbH-23-03138

PATIENT
  Age: 57 Year
  Sex: Female
  Weight: 72 kg

DRUGS (4)
  1. BOCOUTURE [Suspect]
     Active Substance: BOTULINUM TOXIN TYPE A
     Indication: Skin wrinkling
     Route: 030
     Dates: start: 20230802, end: 20230802
  2. BOCOUTURE [Suspect]
     Active Substance: BOTULINUM TOXIN TYPE A
     Indication: Skin wrinkling
  3. BOCOUTURE [Suspect]
     Active Substance: BOTULINUM TOXIN TYPE A
     Indication: Skin cosmetic procedure
  4. BOCOUTURE [Suspect]
     Active Substance: BOTULINUM TOXIN TYPE A
     Indication: Skin cosmetic procedure

REACTIONS (1)
  - Thrombosis [Recovered/Resolved]

NARRATIVE: CASE EVENT DATE: 20230809
